FAERS Safety Report 6327593-1 (Version None)
Quarter: 2009Q3

REPORT INFORMATION
  Report Type: 
  Country: None (occurrence: None)
  Receive Date: 20090825
  Receipt Date: 20090821
  Transmission Date: 20100115
  Serious: Yes (Other)
  Sender: FDA-Public Use
  Company Number: US-B.I. PHARMACEUTICALS,INC./RIDGEFIELD-2009-BP-09938PF

PATIENT
  Sex: Male
  Weight: 87.09 kg

DRUGS (12)
  1. SPIRIVA [Suspect]
     Indication: RESTRICTIVE PULMONARY DISEASE
     Dates: start: 20060101
  2. SPIRIVA [Suspect]
     Indication: CHRONIC OBSTRUCTIVE PULMONARY DISEASE
  3. AMLODIPINE [Suspect]
     Indication: HYPERTENSION
     Dosage: 5 MG
     Dates: start: 20060101
  4. FLUTICASONE AND SALMETEROL [Concomitant]
  5. ALBUTEROL [Concomitant]
  6. VENLAFAXINE HCL [Concomitant]
  7. FUROSEMIDE [Concomitant]
  8. LISINOPRIL [Concomitant]
  9. METOPROLOL [Concomitant]
  10. OMEPRAZOLE [Concomitant]
  11. DOXEPIN HCL [Concomitant]
  12. QUETIAPINE [Concomitant]

REACTIONS (1)
  - DISABILITY [None]
